FAERS Safety Report 16002496 (Version 1)
Quarter: 2019Q1

REPORT INFORMATION
  Report Type: Spontaneous
  Country: GB (occurrence: GB)
  Receive Date: 20190225
  Receipt Date: 20190225
  Transmission Date: 20190418
  Serious: Yes (Death)
  Sender: FDA-Public Use
  Company Number: GB-SA-2019SA049877

PATIENT
  Age: 66 Year
  Sex: Female

DRUGS (1)
  1. ENOXAPARIN SODIUM. [Suspect]
     Active Substance: ENOXAPARIN SODIUM
     Indication: ANTICOAGULANT THERAPY
     Dosage: 40 MG, QD
     Route: 058
     Dates: start: 20181226, end: 20190102

REACTIONS (5)
  - Acute kidney injury [Fatal]
  - Death [Fatal]
  - Contraindicated product administered [Fatal]
  - Incorrect dose administered [Fatal]
  - Malaise [Fatal]

NARRATIVE: CASE EVENT DATE: 20190103
